FAERS Safety Report 4316297-2 (Version None)
Quarter: 2004Q1

REPORT INFORMATION
  Report Type: 
  Country: None (occurrence: None)
  Receive Date: 20040311
  Receipt Date: 20040305
  Transmission Date: 20041129
  Serious: Yes (Other)
  Sender: FDA-Public Use
  Company Number: DEWYE537927JAN04

PATIENT
  Age: 62 Year
  Sex: Male

DRUGS (2)
  1. RAPAMUNE [Suspect]
     Indication: PROPHYLAXIS AGAINST TRANSPLANT REJECTION
     Dosage: 1.5 G ORAL
     Route: 048
  2. TACROLIMUS (TACROLIMUS, ,0) [Suspect]
     Indication: PROPHYLAXIS AGAINST TRANSPLANT REJECTION

REACTIONS (3)
  - DEMYELINATING POLYNEUROPATHY [None]
  - PARAESTHESIA [None]
  - SENSORIMOTOR DISORDER [None]
